FAERS Safety Report 16739112 (Version 1)
Quarter: 2019Q3

REPORT INFORMATION
  Report Type: Spontaneous
  Country: US (occurrence: US)
  Receive Date: 20190826
  Receipt Date: 20190826
  Transmission Date: 20191005
  Serious: Yes (Hospitalization)
  Sender: FDA-Public Use
  Company Number: US-JNJFOC-20190815315

PATIENT
  Age: 7 Month
  Sex: Male

DRUGS (1)
  1. MOTRIN INFANTS [Suspect]
     Active Substance: IBUPROFEN
     Indication: PRODUCT USED FOR UNKNOWN INDICATION
     Route: 048
     Dates: start: 20190809

REACTIONS (3)
  - Eye disorder [Unknown]
  - Hypersensitivity [Unknown]
  - Crying [Unknown]

NARRATIVE: CASE EVENT DATE: 20190810
